FAERS Safety Report 23634037 (Version 1)
Quarter: 2024Q1

REPORT INFORMATION
  Report Type: Spontaneous
  Country: US (occurrence: US)
  Receive Date: 20240314
  Receipt Date: 20240314
  Transmission Date: 20240410
  Serious: No
  Sender: FDA-Public Use
  Company Number: US-BIOMARINAP-US-2024-156355

PATIENT

DRUGS (5)
  1. PALYNZIQ [Suspect]
     Active Substance: PEGVALIASE-PQPZ
     Indication: Phenylketonuria
     Dosage: 2.5 MILLIGRAM
     Route: 058
     Dates: start: 202401
  2. ZYRTEC [Concomitant]
     Active Substance: CETIRIZINE HYDROCHLORIDE
     Indication: Premedication
  3. PEPCID [Concomitant]
     Active Substance: FAMOTIDINE
     Indication: Premedication
  4. IBUPROFEN [Concomitant]
     Active Substance: IBUPROFEN
     Indication: Premedication
  5. EPINEPHRINE [Concomitant]
     Active Substance: EPINEPHRINE
     Indication: Product used for unknown indication

REACTIONS (2)
  - Injection site swelling [Unknown]
  - Injection site mass [Unknown]
